FAERS Safety Report 7273846-2 (Version None)
Quarter: 2011Q1

REPORT INFORMATION
  Report Type: 
  Country: None (occurrence: None)
  Receive Date: 20110203
  Receipt Date: 20110121
  Transmission Date: 20110831
  Serious: Yes (Hospitalization)
  Sender: FDA-Public Use
  Company Number: US-ELI_LILLY_AND_COMPANY-US201012002281

PATIENT
  Sex: Female
  Weight: 83.9 kg

DRUGS (20)
  1. CALCIUM PLUS D3 [Concomitant]
     Dosage: 500 MG, 2/D
  2. FENTANYL [Concomitant]
     Dosage: 50 UG, Q 72H
  3. TOPAMAX [Concomitant]
     Dosage: 100 MG, 2/D
  4. FORTEO [Suspect]
     Indication: OSTEOPOROSIS
     Dosage: 20 UG, DAILY (1/D)
     Route: 058
     Dates: start: 20100827, end: 20101005
  5. BENZONATATE [Concomitant]
  6. CELEXA [Concomitant]
  7. VITAMIN D [Concomitant]
     Dosage: UNK, 2/D
  8. ZANTAC [Concomitant]
  9. AUGMENTIN '125' [Concomitant]
  10. FOSAMAX [Concomitant]
  11. FIORICET [Concomitant]
  12. REQUIP [Concomitant]
     Dosage: 3 MG, BEDTIME
  13. XOPENEX [Concomitant]
  14. PERCOCET [Concomitant]
  15. LORAZEPAM [Concomitant]
     Dosage: 1 MG, UNK
  16. POLYGAM S/D [Concomitant]
  17. MEDROL [Concomitant]
  18. SIMVASTATIN [Concomitant]
     Dosage: 40 MG, DAILY (1/D)
  19. ADVAIR [Concomitant]
     Dosage: 1 D/F(500/50), 2/D
  20. PREDNISONE [Concomitant]

REACTIONS (5)
  - MALAISE [None]
  - BRONCHITIS [None]
  - HEADACHE [None]
  - CHRONIC OBSTRUCTIVE PULMONARY DISEASE [None]
  - ASTHMA [None]
